FAERS Safety Report 5882769-2 (Version None)
Quarter: 2008Q3

REPORT INFORMATION
  Report Type: 
  Country: None (occurrence: None)
  Receive Date: 20080913
  Receipt Date: 20080821
  Transmission Date: 20090109
  Serious: No
  Sender: FDA-Public Use
  Company Number: US-ABBOTT-08P-163-0471154-00

PATIENT
  Sex: Female
  Weight: 49.94 kg

DRUGS (5)
  1. HUMIRA [Suspect]
     Indication: CROHN'S DISEASE
     Dosage: 2- 40 MG INJECTIONS
     Route: 058
     Dates: start: 20080806
  2. HUMIRA [Suspect]
     Indication: RHEUMATOID ARTHRITIS
  3. HUMIRA [Suspect]
     Indication: SYSTEMIC LUPUS ERYTHEMATOSUS
  4. HUMIRA [Suspect]
     Indication: IRRITABLE BOWEL SYNDROME
  5. SULFASALAZINE [Concomitant]
     Indication: CROHN'S DISEASE
     Dosage: 8 OF 500 MILLIGRAMS QDE
     Route: 048
     Dates: start: 20070101

REACTIONS (8)
  - ABDOMINAL PAIN UPPER [None]
  - DIARRHOEA [None]
  - INFECTION [None]
  - MUSCLE SPASMS [None]
  - NAUSEA [None]
  - PAIN [None]
  - PYREXIA [None]
  - RECTAL HAEMORRHAGE [None]
